FAERS Safety Report 21601164 (Version 1)
Quarter: 2022Q4

REPORT INFORMATION
  Report Type: Spontaneous
  Country: AR (occurrence: None)
  Receive Date: 20221116
  Receipt Date: 20221116
  Transmission Date: 20230113
  Serious: Yes (Other)
  Sender: FDA-Public Use
  Company Number: 2022A374933

PATIENT
  Sex: Female

DRUGS (1)
  1. FULVESTRANT [Suspect]
     Active Substance: FULVESTRANT
     Dosage: UNKNOWN UNKNOWN
     Route: 065

REACTIONS (5)
  - Gait inability [Unknown]
  - Nervousness [Unknown]
  - Pain [Unknown]
  - Mood altered [Unknown]
  - Off label use [Unknown]
